FAERS Safety Report 17374652 (Version 1)
Quarter: 2020Q1

REPORT INFORMATION
  Report Type: Spontaneous
  Country: GB (occurrence: GB)
  Receive Date: 20200206
  Receipt Date: 20200206
  Transmission Date: 20200409
  Serious: Yes (Hospitalization)
  Sender: FDA-Public Use
  Company Number: GB-TEVA-2020-GB-1181576

PATIENT
  Age: 70 Year
  Sex: Female

DRUGS (8)
  1. LORAZEPAM. [Concomitant]
     Active Substance: LORAZEPAM
     Dosage: FOUR HOURLY, MAXIMUM 1MG 0.5 MG
     Route: 048
  2. ARIPIPRAZOLE. [Concomitant]
     Active Substance: ARIPIPRAZOLE
     Indication: DEPRESSION
     Dosage: 10 MG 1 DAYS
     Route: 048
     Dates: start: 20191010
  3. DULOXETINE. [Suspect]
     Active Substance: DULOXETINE
     Indication: DEPRESSION
     Dosage: 60 MG 1 DAYS
     Route: 048
     Dates: start: 20191026
  4. TRIMETHOPRIM. [Concomitant]
     Active Substance: TRIMETHOPRIM
     Indication: URINARY TRACT INFECTION
  5. ATORVASTATIN [Concomitant]
     Active Substance: ATORVASTATIN
     Dosage: AT NIGHT , 20 MG 1 DAYS
     Route: 048
  6. MIRTAZAPINE. [Suspect]
     Active Substance: MIRTAZAPINE
     Indication: DEPRESSION
     Dosage: AT NIGHT , 45 MG 1 DAYS
     Route: 048
     Dates: start: 2018
  7. DULOXETINE. [Suspect]
     Active Substance: DULOXETINE
     Indication: DEPRESSION
     Dosage: 90 MG 1 DAYS
     Route: 048
     Dates: start: 20191007, end: 20191025
  8. DULOXETINE. [Suspect]
     Active Substance: DULOXETINE
     Indication: DEPRESSION
     Dosage: 60MG OD 30/9/19 TILL 6/10/19 THEN 90MG OD TILL 25/10/19 WHEN THIS WAS REDUCED TO 60MG OD , 60 MG 1 D
     Route: 048
     Dates: start: 20190930, end: 20191006

REACTIONS (10)
  - Cold sweat [Unknown]
  - Musculoskeletal stiffness [Unknown]
  - Anxiety [Unknown]
  - Tachycardia [Unknown]
  - Serotonin syndrome [Unknown]
  - Urinary retention [Recovering/Resolving]
  - Persecutory delusion [Unknown]
  - Hyperhidrosis [Unknown]
  - Disorientation [Unknown]
  - Confusional state [Unknown]

NARRATIVE: CASE EVENT DATE: 20191028
